FAERS Safety Report 4802172-3 (Version None)
Quarter: 2005Q4

REPORT INFORMATION
  Report Type: 
  Country: None (occurrence: None)
  Receive Date: 20051012
  Receipt Date: 20050926
  Transmission Date: 20060501
  Serious: Yes (Hospitalization)
  Sender: FDA-Public Use
  Company Number: 2005-US-00233

PATIENT
  Age: 82 Year
  Sex: Female

DRUGS (1)
  1. CLOZAPINE [Suspect]
     Dosage: 50 MG, QD, ORAL
     Route: 048
     Dates: start: 20050401

REACTIONS (2)
  - DEHYDRATION [None]
  - MALAISE [None]
